FAERS Safety Report 8345375-6 (Version None)
Quarter: 2012Q2

REPORT INFORMATION
  Report Type: 
  Country: None (occurrence: None)
  Receive Date: 20120504
  Receipt Date: 20120427
  Transmission Date: 20120825
  Serious: Yes (Hospitalization)
  Sender: FDA-Public Use
  Company Number: WAES 1204USA04308

PATIENT
  Age: 53 Year
  Sex: Male
  Weight: 112.9457 kg

DRUGS (18)
  1. CELEXA [Concomitant]
  2. SENOKOT [Concomitant]
  3. VALTREX [Concomitant]
  4. NEURONTIN [Concomitant]
  5. AMBIEN [Concomitant]
  6. DILAUDID [Concomitant]
  7. MIRALAX [Concomitant]
  8. VELCADE [Suspect]
     Indication: MULTIPLE MYELOMA
     Dosage: 1.3 MG/M[2] /WKY/IV
     Route: 042
     Dates: start: 20110812, end: 20111014
  9. CYTOXAN [Suspect]
     Indication: MULTIPLE MYELOMA
     Dosage: 300 MG/WKY/IV
     Route: 042
     Dates: start: 20110812, end: 20110914
  10. MORPHINE SULFATE [Concomitant]
  11. ATIVAN [Concomitant]
  12. LORTAB [Concomitant]
  13. METOPROLOL TARTRATE [Concomitant]
  14. DECADRON [Suspect]
     Indication: MULTIPLE MYELOMA
     Dosage: 40 MG/WKY/PO
     Route: 048
     Dates: start: 20110907, end: 20111014
  15. NORVASC [Concomitant]
  16. PROTONIX [Concomitant]
  17. LACTULASE [Concomitant]
  18. MAGNESIUM [Concomitant]

REACTIONS (1)
  - SYNCOPE [None]
